FAERS Safety Report 10459689 (Version 2)
Quarter: 2014Q4

REPORT INFORMATION
  Report Type: Spontaneous
  Country: FR (occurrence: FR)
  Receive Date: 20140917
  Receipt Date: 20141022
  Transmission Date: 20150528
  Serious: Yes (Hospitalization)
  Sender: FDA-Public Use
  Company Number: FR-JNJFOC-20140912562

PATIENT
  Age: 6 Year
  Sex: Male
  Weight: 20 kg

DRUGS (2)
  1. REMICADE [Suspect]
     Active Substance: INFLIXIMAB
     Indication: COLITIS ULCERATIVE
     Dosage: 100 MG/DAY
     Route: 042
     Dates: start: 20140812, end: 20140812
  2. IMUREL [Suspect]
     Active Substance: AZATHIOPRINE SODIUM
     Indication: COLITIS ULCERATIVE
     Route: 048
     Dates: start: 201310, end: 20140816

REACTIONS (3)
  - Pancreatitis [Recovering/Resolving]
  - Diarrhoea haemorrhagic [Unknown]
  - Vomiting [Unknown]

NARRATIVE: CASE EVENT DATE: 20140816
